FAERS Safety Report 8591780-2 (Version None)
Quarter: 2012Q3

REPORT INFORMATION
  Report Type: 
  Country: None (occurrence: None)
  Receive Date: 20120814
  Receipt Date: 20120806
  Transmission Date: 20120928
  Serious: Yes (Hospitalization)
  Sender: FDA-Public Use
  Company Number: PHHY2012FR069223

PATIENT
  Sex: Male

DRUGS (10)
  1. AREDIA [Suspect]
     Dosage: 1 DF, UNK
     Dates: start: 20120617, end: 20120617
  2. TRANSIPEG [Concomitant]
  3. OXAZEPAM [Concomitant]
  4. ACETAMINOPHEN [Concomitant]
  5. TRAMADOL HCL [Concomitant]
  6. OMEPRAZOLE [Concomitant]
  7. AREDIA [Suspect]
     Dosage: 1 DF, UNK
     Dates: start: 20120616
  8. FLUTICASONE PROPIONATE/SALMETEROL [Concomitant]
  9. FLUTICASONE PROPIONATE [Concomitant]
  10. LAMICTAL [Concomitant]
     Dosage: 100 MG, UNK

REACTIONS (4)
  - BLOOD IMMUNOGLOBULIN M ABNORMAL [None]
  - THROMBOCYTOPENIA [None]
  - ANTINUCLEAR ANTIBODY POSITIVE [None]
  - MONOCLONAL IMMUNOGLOBULIN PRESENT [None]
